FAERS Safety Report 17123582 (Version 1)
Quarter: 2019Q4

REPORT INFORMATION
  Report Type: Spontaneous
  Country: DE (occurrence: DE)
  Receive Date: 20191206
  Receipt Date: 20191206
  Transmission Date: 20200122
  Serious: Yes (Death, Hospitalization)
  Sender: FDA-Public Use
  Company Number: NVSC2019DE059023

PATIENT
  Age: 80 Year
  Sex: Male

DRUGS (4)
  1. DOCETAXEL. [Suspect]
     Active Substance: DOCETAXEL
     Indication: ADENOCARCINOMA
     Dosage: UNK ONCE WEEKLY
     Route: 065
     Dates: start: 201708, end: 201710
  2. VARGATEF [Suspect]
     Active Substance: NINTEDANIB
     Dosage: 200 MG, QD
     Route: 065
     Dates: start: 201710, end: 201710
  3. VARGATEF [Suspect]
     Active Substance: NINTEDANIB
     Indication: PRODUCT USED FOR UNKNOWN INDICATION
     Dosage: 400 MG, QD
     Route: 065
     Dates: start: 201708
  4. VARGATEF [Suspect]
     Active Substance: NINTEDANIB
     Dosage: 300 MG, QD
     Route: 065
     Dates: start: 201709

REACTIONS (2)
  - Pneumonia [Unknown]
  - Death [Fatal]

NARRATIVE: CASE EVENT DATE: 201804
